FAERS Safety Report 24273846 (Version 6)
Quarter: 2025Q1

REPORT INFORMATION
  Report Type: Spontaneous
  Country: CA (occurrence: CA)
  Receive Date: 20240902
  Receipt Date: 20250313
  Transmission Date: 20250409
  Serious: Yes (Congenital Anomaly, Other)
  Sender: PFIZER
  Company Number: CA-002147023-NVSC2024CA168989

PATIENT

DRUGS (176)
  1. ENBREL [Suspect]
     Active Substance: ETANERCEPT
     Route: 064
  2. ENBREL [Suspect]
     Active Substance: ETANERCEPT
     Dosage: 50 MG, WEEKLY
     Route: 064
  3. ADALIMUMAB [Suspect]
     Active Substance: ADALIMUMAB
     Route: 064
  4. INFLIXIMAB [Suspect]
     Active Substance: INFLIXIMAB
     Route: 064
  5. INFLIXIMAB [Suspect]
     Active Substance: INFLIXIMAB
     Route: 064
  6. RITUXIMAB [Suspect]
     Active Substance: RITUXIMAB
     Route: 064
  7. RITUXIMAB [Suspect]
     Active Substance: RITUXIMAB
     Route: 064
  8. RITUXIMAB [Suspect]
     Active Substance: RITUXIMAB
     Route: 064
  9. RITUXIMAB [Suspect]
     Active Substance: RITUXIMAB
     Route: 064
  10. RITUXIMAB [Suspect]
     Active Substance: RITUXIMAB
     Dosage: 1000 MG, 2X/DAY
     Route: 064
  11. RITUXIMAB [Suspect]
     Active Substance: RITUXIMAB
     Dosage: 2000 MG, 1X/DAY
     Route: 064
  12. RITUXIMAB [Suspect]
     Active Substance: RITUXIMAB
     Route: 064
  13. METHOTREXATE SODIUM [Suspect]
     Active Substance: METHOTREXATE SODIUM
     Route: 064
  14. METHOTREXATE SODIUM [Suspect]
     Active Substance: METHOTREXATE SODIUM
     Route: 064
  15. METHOTREXATE SODIUM [Suspect]
     Active Substance: METHOTREXATE SODIUM
     Route: 064
  16. METHOTREXATE SODIUM [Suspect]
     Active Substance: METHOTREXATE SODIUM
     Route: 064
  17. METHYLPREDNISOLONE [Suspect]
     Active Substance: METHYLPREDNISOLONE
     Route: 064
  18. METHYLPREDNISOLONE SODIUM SUCCINATE [Suspect]
     Active Substance: METHYLPREDNISOLONE SODIUM SUCCINATE
     Route: 064
  19. HYDROCORTISONE [Suspect]
     Active Substance: HYDROCORTISONE
     Route: 064
  20. SULFASALAZINE [Suspect]
     Active Substance: SULFASALAZINE
     Route: 064
  21. SULFASALAZINE [Suspect]
     Active Substance: SULFASALAZINE
     Route: 064
  22. SULFASALAZINE [Suspect]
     Active Substance: SULFASALAZINE
     Route: 064
  23. SULFASALAZINE [Suspect]
     Active Substance: SULFASALAZINE
     Route: 064
  24. SULFASALAZINE [Suspect]
     Active Substance: SULFASALAZINE
     Route: 064
  25. SULFASALAZINE [Suspect]
     Active Substance: SULFASALAZINE
     Route: 064
  26. SULFASALAZINE [Suspect]
     Active Substance: SULFASALAZINE
     Route: 064
  27. XELJANZ [Suspect]
     Active Substance: TOFACITINIB CITRATE
     Route: 064
  28. XELJANZ [Suspect]
     Active Substance: TOFACITINIB CITRATE
     Route: 064
  29. AIMOVIG [Suspect]
     Active Substance: ERENUMAB-AOOE
     Route: 064
  30. COSENTYX [Suspect]
     Active Substance: SECUKINUMAB
     Route: 064
  31. DICLOFENAC POTASSIUM [Suspect]
     Active Substance: DICLOFENAC POTASSIUM
     Route: 064
  32. DICLOFENAC SODIUM [Suspect]
     Active Substance: DICLOFENAC SODIUM
     Route: 064
  33. DICLOFENAC [Suspect]
     Active Substance: DICLOFENAC
     Route: 064
  34. ACETAMINOPHEN [Suspect]
     Active Substance: ACETAMINOPHEN
     Route: 064
  35. ACETAMINOPHEN AND CODEINE [Suspect]
     Active Substance: ACETAMINOPHEN\CODEINE PHOSPHATE
     Route: 064
  36. ACTEMRA [Suspect]
     Active Substance: TOCILIZUMAB
     Route: 064
  37. ACTEMRA [Suspect]
     Active Substance: TOCILIZUMAB
     Route: 064
  38. ACTEMRA [Suspect]
     Active Substance: TOCILIZUMAB
     Route: 064
  39. ACTEMRA [Suspect]
     Active Substance: TOCILIZUMAB
     Route: 064
  40. ACTEMRA [Suspect]
     Active Substance: TOCILIZUMAB
     Route: 064
  41. ACTEMRA [Suspect]
     Active Substance: TOCILIZUMAB
     Route: 064
  42. ACTEMRA [Suspect]
     Active Substance: TOCILIZUMAB
     Route: 064
  43. ACTEMRA [Suspect]
     Active Substance: TOCILIZUMAB
     Route: 064
  44. ACTEMRA [Suspect]
     Active Substance: TOCILIZUMAB
     Route: 064
  45. ACTEMRA [Suspect]
     Active Substance: TOCILIZUMAB
     Route: 064
  46. ALENDRONATE SODIUM [Suspect]
     Active Substance: ALENDRONATE SODIUM
     Route: 064
  47. ALENDRONIC ACID [Suspect]
     Active Substance: ALENDRONIC ACID
     Route: 064
  48. LEFLUNOMIDE [Suspect]
     Active Substance: LEFLUNOMIDE
     Route: 064
  49. LEFLUNOMIDE [Suspect]
     Active Substance: LEFLUNOMIDE
     Route: 064
  50. LEFLUNOMIDE [Suspect]
     Active Substance: LEFLUNOMIDE
     Route: 064
  51. LEFLUNOMIDE [Suspect]
     Active Substance: LEFLUNOMIDE
     Route: 064
  52. LEFLUNOMIDE [Suspect]
     Active Substance: LEFLUNOMIDE
     Route: 064
  53. LEFLUNOMIDE [Suspect]
     Active Substance: LEFLUNOMIDE
     Route: 064
  54. LEFLUNOMIDE [Suspect]
     Active Substance: LEFLUNOMIDE
     Route: 064
  55. LEFLUNOMIDE [Suspect]
     Active Substance: LEFLUNOMIDE
     Route: 064
  56. LEFLUNOMIDE [Suspect]
     Active Substance: LEFLUNOMIDE
     Route: 064
  57. PREDNISONE [Suspect]
     Active Substance: PREDNISONE
     Route: 064
  58. ARAVA [Suspect]
     Active Substance: LEFLUNOMIDE
     Route: 064
  59. ATOMOXETINE HYDROCHLORIDE [Suspect]
     Active Substance: ATOMOXETINE HYDROCHLORIDE
     Route: 064
  60. ATOMOXETINE HYDROCHLORIDE [Suspect]
     Active Substance: ATOMOXETINE HYDROCHLORIDE
     Route: 064
  61. AZATHIOPRINE SODIUM [Suspect]
     Active Substance: AZATHIOPRINE SODIUM
     Route: 064
  62. AZATHIOPRINE SODIUM [Suspect]
     Active Substance: AZATHIOPRINE SODIUM
     Route: 064
  63. BERINERT [Suspect]
     Active Substance: HUMAN C1-ESTERASE INHIBITOR
     Route: 064
  64. BERINERT [Suspect]
     Active Substance: HUMAN C1-ESTERASE INHIBITOR
     Route: 064
  65. BOTULINUM TOXIN TYPE A [Suspect]
     Active Substance: BOTULINUM TOXIN TYPE A
     Route: 064
  66. BOTULINUM TOXIN TYPE A [Suspect]
     Active Substance: BOTULINUM TOXIN TYPE A
     Route: 064
  67. BUTRANS [Suspect]
     Active Substance: BUPRENORPHINE
     Route: 064
  68. CALCIUM ASCORBATE [Suspect]
     Active Substance: CALCIUM ASCORBATE
     Route: 064
  69. CALCIUM CITRATE [Suspect]
     Active Substance: CALCIUM CITRATE
     Route: 064
  70. CALCIUM GLUBIONATE [Suspect]
     Active Substance: CALCIUM GLUBIONATE
     Route: 064
  71. CANDESARTAN [Suspect]
     Active Substance: CANDESARTAN
     Route: 064
  72. CELEBREX [Suspect]
     Active Substance: CELECOXIB
     Route: 064
  73. CELEBREX [Suspect]
     Active Substance: CELECOXIB
     Dosage: 2 DF, 1X/DAY
     Route: 064
  74. CELEBREX [Suspect]
     Active Substance: CELECOXIB
     Route: 064
  75. CETIRIZINE HYDROCHLORIDE [Suspect]
     Active Substance: CETIRIZINE HYDROCHLORIDE
     Route: 064
  76. CETIRIZINE HYDROCHLORIDE [Suspect]
     Active Substance: CETIRIZINE HYDROCHLORIDE
     Route: 064
  77. CETIRIZINE HYDROCHLORIDE [Suspect]
     Active Substance: CETIRIZINE HYDROCHLORIDE
     Route: 064
  78. CETIRIZINE HYDROCHLORIDE [Suspect]
     Active Substance: CETIRIZINE HYDROCHLORIDE
     Route: 064
  79. CETIRIZINE HYDROCHLORIDE [Suspect]
     Active Substance: CETIRIZINE HYDROCHLORIDE
     Route: 064
  80. CHLORHEXIDINE GLUCONATE [Suspect]
     Active Substance: CHLORHEXIDINE GLUCONATE
     Route: 064
  81. CHOLECALCIFEROL [Suspect]
     Active Substance: CHOLECALCIFEROL
     Route: 064
  82. CIMZIA [Suspect]
     Active Substance: CERTOLIZUMAB PEGOL
     Route: 064
  83. CIMZIA [Suspect]
     Active Substance: CERTOLIZUMAB PEGOL
     Route: 064
  84. CIMZIA [Suspect]
     Active Substance: CERTOLIZUMAB PEGOL
     Route: 064
  85. CORTISONE ACETATE [Suspect]
     Active Substance: CORTISONE ACETATE
     Route: 064
  86. CORTISONE ACETATE [Suspect]
     Active Substance: CORTISONE ACETATE
     Route: 064
  87. CORTISONE ACETATE [Suspect]
     Active Substance: CORTISONE ACETATE
     Route: 064
  88. CORTISONE ACETATE [Suspect]
     Active Substance: CORTISONE ACETATE
     Route: 064
  89. CORTISONE ACETATE [Suspect]
     Active Substance: CORTISONE ACETATE
     Route: 064
  90. CORTISONE ACETATE [Suspect]
     Active Substance: CORTISONE ACETATE
     Route: 064
  91. DESOXIMETASONE [Suspect]
     Active Substance: DESOXIMETASONE
     Route: 064
  92. DESOXIMETASONE [Suspect]
     Active Substance: DESOXIMETASONE
     Route: 064
  93. DESOXIMETASONE [Suspect]
     Active Substance: DESOXIMETASONE
     Route: 064
  94. DOMPERIDONE MALEATE [Suspect]
     Active Substance: DOMPERIDONE MALEATE
     Route: 064
  95. ERGOCALCIFEROL [Suspect]
     Active Substance: ERGOCALCIFEROL
     Route: 064
  96. FLUMETHASONE [Suspect]
     Active Substance: FLUMETHASONE
     Route: 064
  97. FLUMETHASONE PIVALATE [Suspect]
     Active Substance: FLUMETHASONE PIVALATE
     Route: 064
  98. FLUMETHASONE PIVALATE [Suspect]
     Active Substance: FLUMETHASONE PIVALATE
     Route: 064
  99. FOLIC ACID [Suspect]
     Active Substance: FOLIC ACID
     Route: 064
  100. FOLIC ACID [Suspect]
     Active Substance: FOLIC ACID
     Route: 064
  101. FOLIC ACID [Suspect]
     Active Substance: FOLIC ACID
     Route: 064
  102. FOLIC ACID [Suspect]
     Active Substance: FOLIC ACID
     Route: 064
  103. FOLIC ACID [Suspect]
     Active Substance: FOLIC ACID
     Route: 064
  104. FOLIC ACID [Suspect]
     Active Substance: FOLIC ACID
     Route: 064
  105. FOLIC ACID [Suspect]
     Active Substance: FOLIC ACID
     Route: 064
  106. FOLIC ACID [Suspect]
     Active Substance: FOLIC ACID
     Route: 064
  107. FOLIC ACID [Suspect]
     Active Substance: FOLIC ACID
     Route: 064
  108. FOLIC ACID [Suspect]
     Active Substance: FOLIC ACID
     Route: 064
  109. FOSAMAX [Suspect]
     Active Substance: ALENDRONATE SODIUM
     Route: 064
  110. FOSAMAX [Suspect]
     Active Substance: ALENDRONATE SODIUM
     Route: 064
  111. FOSAMAX [Suspect]
     Active Substance: ALENDRONATE SODIUM
     Route: 064
  112. HAIR KERATIN AMINO ACIDS GOLD COMPLEX [Suspect]
     Active Substance: HAIR KERATIN AMINO ACIDS GOLD COMPLEX
     Route: 064
  113. GOLD SODIUM THIOMALATE [Suspect]
     Active Substance: GOLD SODIUM THIOMALATE
     Route: 064
  114. GOLD SODIUM THIOMALATE [Suspect]
     Active Substance: GOLD SODIUM THIOMALATE
     Route: 064
  115. HUMIRA [Suspect]
     Active Substance: ADALIMUMAB
     Route: 064
  116. HUMIRA [Suspect]
     Active Substance: ADALIMUMAB
     Route: 064
  117. HUMIRA [Suspect]
     Active Substance: ADALIMUMAB
     Route: 064
  118. HYDROCORTISONE PROBUTATE [Suspect]
     Active Substance: HYDROCORTISONE PROBUTATE
     Route: 064
  119. HYDROXYCHLOROQUINE [Suspect]
     Active Substance: HYDROXYCHLOROQUINE
     Route: 064
  120. HYDROXYCHLOROQUINE [Suspect]
     Active Substance: HYDROXYCHLOROQUINE
     Route: 064
  121. HYDROXYCHLOROQUINE [Suspect]
     Active Substance: HYDROXYCHLOROQUINE
     Route: 064
  122. HYDROXYCHLOROQUINE SULFATE [Suspect]
     Active Substance: HYDROXYCHLOROQUINE SULFATE
     Route: 064
  123. ISOPROPYL ALCOHOL [Suspect]
     Active Substance: ISOPROPYL ALCOHOL
     Route: 064
  124. ISOPROPYL ALCOHOL [Suspect]
     Active Substance: ISOPROPYL ALCOHOL
     Route: 064
  125. ISOPROPYL ALCOHOL [Suspect]
     Active Substance: ISOPROPYL ALCOHOL
     Route: 064
  126. LAMICTAL [Suspect]
     Active Substance: LAMOTRIGINE
     Route: 064
  127. LEFLUNOMIDE [Suspect]
     Active Substance: LEFLUNOMIDE
     Route: 064
  128. MAGNESIUM CITRATE [Suspect]
     Active Substance: MAGNESIUM CITRATE
     Route: 064
  129. METFORMIN HYDROCHLORIDE [Suspect]
     Active Substance: METFORMIN HYDROCHLORIDE
     Route: 064
  130. MINOCYCLINE [Suspect]
     Active Substance: MINOCYCLINE HYDROCHLORIDE
     Route: 064
  131. MINOCYCLINE HYDROCHLORIDE [Suspect]
     Active Substance: MINOCYCLINE HYDROCHLORIDE
     Route: 064
  132. MINOCYCLINE HYDROCHLORIDE [Suspect]
     Active Substance: MINOCYCLINE HYDROCHLORIDE
     Route: 064
  133. MYOCHRYSINE [Suspect]
     Active Substance: GOLD SODIUM THIOMALATE
     Route: 064
  134. MYRBETRIQ [Suspect]
     Active Substance: MIRABEGRON
     Route: 064
  135. NAPROXEN [Suspect]
     Active Substance: NAPROXEN
     Route: 064
  136. NAPROXEN SODIUM [Suspect]
     Active Substance: NAPROXEN SODIUM
     Route: 064
  137. NICOTINAMIDE [Suspect]
     Active Substance: NIACINAMIDE
     Route: 064
  138. NUCALA [Suspect]
     Active Substance: MEPOLIZUMAB
     Route: 064
  139. ORENCIA [Suspect]
     Active Substance: ABATACEPT
     Route: 064
  140. OXYCODONE HYDROCHLORIDE [Suspect]
     Active Substance: OXYCODONE HYDROCHLORIDE
     Route: 064
  141. OXYCODONE TEREPHTHALATE [Suspect]
     Active Substance: OXYCODONE TEREPHTHALATE
     Route: 064
  142. PERIOGARD [Suspect]
     Active Substance: CHLORHEXIDINE GLUCONATE
     Route: 064
  143. PHENYLEPHRINE HYDROCHLORIDE [Suspect]
     Active Substance: PHENYLEPHRINE HYDROCHLORIDE
     Route: 064
  144. PHTHALYLSULFATHIAZOLE [Suspect]
     Active Substance: PHTHALYLSULFATHIAZOLE
     Route: 064
  145. PREDNISONE [Suspect]
     Active Substance: PREDNISONE
     Route: 064
  146. PSEUDOEPHEDRINE HYDROCHLORIDE [Suspect]
     Active Substance: PSEUDOEPHEDRINE HYDROCHLORIDE
     Route: 064
  147. RAMIPRIL [Suspect]
     Active Substance: RAMIPRIL
     Route: 064
  148. CETIRIZINE HYDROCHLORIDE\PSEUDOEPHEDRINE HYDROCHLORIDE [Suspect]
     Active Substance: CETIRIZINE HYDROCHLORIDE\PSEUDOEPHEDRINE HYDROCHLORIDE
     Route: 064
  149. CETIRIZINE HYDROCHLORIDE\PSEUDOEPHEDRINE HYDROCHLORIDE [Suspect]
     Active Substance: CETIRIZINE HYDROCHLORIDE\PSEUDOEPHEDRINE HYDROCHLORIDE
     Route: 064
  150. CETIRIZINE HYDROCHLORIDE\PSEUDOEPHEDRINE HYDROCHLORIDE [Suspect]
     Active Substance: CETIRIZINE HYDROCHLORIDE\PSEUDOEPHEDRINE HYDROCHLORIDE
     Route: 064
  151. SIMPONI [Suspect]
     Active Substance: GOLIMUMAB
     Route: 064
  152. SIMPONI [Suspect]
     Active Substance: GOLIMUMAB
     Route: 064
  153. TOPAMAX [Suspect]
     Active Substance: TOPIRAMATE
     Route: 064
  154. TOPAMAX [Suspect]
     Active Substance: TOPIRAMATE
     Route: 064
  155. TOPAMAX [Suspect]
     Active Substance: TOPIRAMATE
     Route: 064
  156. VITAMIN C [Suspect]
     Active Substance: ASCORBIC ACID
     Route: 064
  157. ZINC [Suspect]
     Active Substance: ZINC
     Route: 064
  158. STELARA [Suspect]
     Active Substance: USTEKINUMAB
     Route: 064
  159. DICLOFENAC [Suspect]
     Active Substance: DICLOFENAC
     Route: 064
  160. METFORMIN HYDROCHLORIDE [Suspect]
     Active Substance: METFORMIN HYDROCHLORIDE
     Route: 064
  161. TRUXIMA [Suspect]
     Active Substance: RITUXIMAB-ABBS
     Route: 064
  162. TRUXIMA [Suspect]
     Active Substance: RITUXIMAB-ABBS
     Route: 064
  163. TRUXIMA [Suspect]
     Active Substance: RITUXIMAB-ABBS
     Route: 064
  164. TRUXIMA [Suspect]
     Active Substance: RITUXIMAB-ABBS
     Route: 064
  165. TRUXIMA [Suspect]
     Active Substance: RITUXIMAB-ABBS
     Route: 064
  166. TRUXIMA [Suspect]
     Active Substance: RITUXIMAB-ABBS
     Route: 064
  167. TRUXIMA [Suspect]
     Active Substance: RITUXIMAB-ABBS
     Route: 064
  168. DICLOFENAC SODIUM [Suspect]
     Active Substance: DICLOFENAC SODIUM
     Route: 064
  169. ALENDRONATE SODIUM\CHOLECALCIFEROL [Suspect]
     Active Substance: ALENDRONATE SODIUM\CHOLECALCIFEROL
     Route: 064
  170. ACETAMINOPHEN\TRAMADOL HYDROCHLORIDE [Suspect]
     Active Substance: ACETAMINOPHEN\TRAMADOL HYDROCHLORIDE
     Route: 064
  171. FLUMETHASONE\SALICYLIC ACID [Suspect]
     Active Substance: FLUMETHASONE\SALICYLIC ACID
     Route: 064
  172. NAPROXEN [Suspect]
     Active Substance: NAPROXEN
     Route: 064
  173. REMICADE [Suspect]
     Active Substance: INFLIXIMAB
     Route: 064
  174. REMICADE [Suspect]
     Active Substance: INFLIXIMAB
     Route: 064
  175. REMICADE [Suspect]
     Active Substance: INFLIXIMAB
     Route: 064
  176. REMICADE [Suspect]
     Active Substance: INFLIXIMAB
     Route: 064

REACTIONS (2)
  - Maternal exposure during pregnancy [Unknown]
  - Congenital anomaly [Unknown]
